FAERS Safety Report 13059758 (Version 1)
Quarter: 2016Q4

REPORT INFORMATION
  Report Type: Spontaneous
  Country: FR (occurrence: FR)
  Receive Date: 20161223
  Receipt Date: 20161223
  Transmission Date: 20170207
  Serious: Yes (Hospitalization)
  Sender: FDA-Public Use
  Company Number: FR-ASTRAZENECA-2016SF34829

PATIENT
  Age: 88 Year
  Sex: Female

DRUGS (8)
  1. LERCAN [Suspect]
     Active Substance: LERCANIDIPINE
     Dosage: 20.0MG UNKNOWN
     Route: 048
  2. EUPANTOL [Suspect]
     Active Substance: PANTOPRAZOLE SODIUM
     Dosage: DOSE UNKNOWN
     Route: 048
  3. SIMVASTATINE [Suspect]
     Active Substance: SIMVASTATIN
     Dosage: DOSE UNKNOWN
     Route: 048
  4. DIFFU-K [Concomitant]
     Active Substance: POTASSIUM CHLORIDE
     Dates: start: 20161207
  5. METOPROLOL. [Suspect]
     Active Substance: METOPROLOL
     Dosage: DOSE UNKNWON
     Route: 048
  6. BRILIQUE [Suspect]
     Active Substance: TICAGRELOR
     Dosage: 90.0MG UNKNOWN
     Route: 048
  7. CORENITEC [Suspect]
     Active Substance: ENALAPRIL\HYDROCHLOROTHIAZIDE
     Dosage: DOSE UNKNOWN
     Route: 048
     Dates: end: 20161206
  8. DAFALGAN [Suspect]
     Active Substance: ACETAMINOPHEN
     Dosage: DOSE UNKNOWN
     Route: 048

REACTIONS (5)
  - Vomiting [Unknown]
  - Balance disorder [Unknown]
  - Dysarthria [Unknown]
  - Hyponatraemia [Recovering/Resolving]
  - Hypokalaemia [Recovered/Resolved]

NARRATIVE: CASE EVENT DATE: 20161206
